FAERS Safety Report 8726782 (Version 13)
Quarter: 2015Q1

REPORT INFORMATION
  Report Type: Report from Study
  Country: US (occurrence: US)
  Receive Date: 20120816
  Receipt Date: 20150210
  Transmission Date: 20150721
  Serious: Yes (Hospitalization, Congenital Anomaly, Other)
  Sender: FDA-Public Use
  Company Number: US-ROCHE-1098975

PATIENT
  Age: 0 Day
  Sex: Male

DRUGS (14)
  1. ROCEPHIN [Concomitant]
     Active Substance: CEFTRIAXONE SODIUM
     Indication: EAR INFECTION
     Route: 065
  2. TYLENOL [Concomitant]
     Active Substance: ACETAMINOPHEN
     Indication: PYREXIA
  3. SYMBICORT [Concomitant]
     Active Substance: BUDESONIDE\FORMOTEROL FUMARATE DIHYDRATE
     Indication: ASTHMA
  4. OMALIZUMAB [Suspect]
     Active Substance: OMALIZUMAB
     Route: 063
  5. BENADRYL [Concomitant]
     Active Substance: DIPHENHYDRAMINE HYDROCHLORIDE
  6. LEVOTHYROXINE [Concomitant]
     Active Substance: LEVOTHYROXINE
     Indication: BASEDOW^S DISEASE
  7. DESYREL [Concomitant]
     Active Substance: TRAZODONE HYDROCHLORIDE
     Indication: INSOMNIA
  8. OMALIZUMAB [Suspect]
     Active Substance: OMALIZUMAB
     Indication: PRODUCT USED FOR UNKNOWN INDICATION
     Route: 065
  9. IBUPROFEN. [Concomitant]
     Active Substance: IBUPROFEN
     Indication: PAIN
  10. SINGULAIR [Concomitant]
     Active Substance: MONTELUKAST SODIUM
     Indication: ASTHMA
  11. PRILOSEC [Concomitant]
     Active Substance: OMEPRAZOLE MAGNESIUM
     Indication: GASTROOESOPHAGEAL REFLUX DISEASE
  12. TUMS [Concomitant]
     Active Substance: CALCIUM CARBONATE
     Indication: GASTROOESOPHAGEAL REFLUX DISEASE
  13. CLARITIN [Concomitant]
     Active Substance: LORATADINE
  14. FLUTICASONE PROPIONATE. [Concomitant]
     Active Substance: FLUTICASONE PROPIONATE

REACTIONS (16)
  - Diarrhoea [Unknown]
  - Croup infectious [Unknown]
  - Plagiocephaly [Recovered/Resolved]
  - Jaundice neonatal [Recovered/Resolved]
  - Ear infection [Recovered/Resolved]
  - Wheezing [Not Recovered/Not Resolved]
  - Torticollis [Recovered/Resolved]
  - Upper respiratory tract infection [Unknown]
  - Vomiting [Unknown]
  - Ankyloglossia congenital [Recovered/Resolved]
  - Hypotonia [Unknown]
  - Maternal exposure timing unspecified [Unknown]
  - Sinusitis [Recovered/Resolved]
  - Exposure during breast feeding [Unknown]
  - Weight gain poor [Unknown]
  - Gait disturbance [Unknown]

NARRATIVE: CASE EVENT DATE: 20120721
